FAERS Safety Report 20965851 (Version 2)
Quarter: 2022Q3

REPORT INFORMATION
  Report Type: Spontaneous
  Country: RU (occurrence: None)
  Receive Date: 20220616
  Receipt Date: 20220706
  Transmission Date: 20221026
  Serious: Yes (Other)
  Sender: FDA-Public Use
  Company Number: RU-ROCHE-3114527

PATIENT
  Sex: Female

DRUGS (8)
  1. PERJETA [Suspect]
     Active Substance: PERTUZUMAB
     Indication: Breast cancer
     Dosage: 420 UNIT NOT REPORTED LAST INFUSION OF MAINTENANCE THERAPY
     Route: 065
     Dates: end: 20220617
  2. PERJETA [Suspect]
     Active Substance: PERTUZUMAB
     Dosage: 8 CYCLES
     Route: 065
     Dates: start: 201708, end: 201812
  3. PERJETA [Suspect]
     Active Substance: PERTUZUMAB
     Dosage: MAINTENANCE 2ND TARGETED THERAPY
     Route: 065
     Dates: end: 20200302
  4. HERCEPTIN [Suspect]
     Active Substance: TRASTUZUMAB
     Indication: Breast cancer
     Route: 065
     Dates: start: 20151229, end: 20161206
  5. HERCEPTIN [Suspect]
     Active Substance: TRASTUZUMAB
     Dosage: 8 CYCLES
     Route: 065
     Dates: start: 201708, end: 201812
  6. HERCEPTIN [Suspect]
     Active Substance: TRASTUZUMAB
     Dosage: MAINTENANCE 2ND TARGETED THERAPY
     Route: 065
     Dates: end: 20200302
  7. HERCEPTIN [Suspect]
     Active Substance: TRASTUZUMAB
     Dosage: LAST INFUSION OF MAINTENANCE THERAPY
     Route: 065
     Dates: end: 20220617
  8. DOCETAXEL [Suspect]
     Active Substance: DOCETAXEL
     Indication: Breast cancer
     Dosage: 8 CYCLES
     Route: 065
     Dates: start: 201708, end: 201812

REACTIONS (1)
  - Disease progression [Recovered/Resolved]
